FAERS Safety Report 18551521 (Version 4)
Quarter: 2025Q4

REPORT INFORMATION
  Report Type: Spontaneous
  Country: US (occurrence: US)
  Receive Date: 20201126
  Receipt Date: 20251128
  Transmission Date: 20260117
  Serious: Yes (Death, Other)
  Sender: PURDUE
  Company Number: US-PURDUE-USA-2020-0176126

PATIENT
  Age: 43 Year
  Sex: Male

DRUGS (45)
  1. OXYCONTIN [Suspect]
     Active Substance: OXYCODONE HYDROCHLORIDE
     Indication: Product used for unknown indication
     Dosage: UNK
     Route: 048
  2. MORPHINE SULFATE [Suspect]
     Active Substance: MORPHINE SULFATE
     Indication: Pain
     Dosage: UNK
     Route: 048
  3. MORPHINE SULFATE [Suspect]
     Active Substance: MORPHINE SULFATE
     Dosage: 1 TABLET, Q8H (STRENGTH 100 MG , TAKE WITH 60 MG TABLETS) (TOTAL DOSE 160 MG)
     Route: 048
     Dates: start: 20011130, end: 20011230
  4. MORPHINE SULFATE [Suspect]
     Active Substance: MORPHINE SULFATE
     Dosage: 1 TABLET, Q8H (STRENGTH 60 MG , TAKE WITH 100 MG TABLETS) (TOTAL DOSE 160 MG)
     Route: 048
     Dates: start: 20011130, end: 20011230
  5. MORPHINE SULFATE [Suspect]
     Active Substance: MORPHINE SULFATE
     Dosage: 1 TABLET, Q8H (STRENGTH 60 MG)
     Route: 048
     Dates: start: 20011227, end: 20020126
  6. MORPHINE SULFATE [Suspect]
     Active Substance: MORPHINE SULFATE
     Dosage: 1 TABLET, Q8H (STRENGTH 100 MG)
     Route: 048
     Dates: start: 20011227, end: 20020126
  7. MORPHINE SULFATE [Suspect]
     Active Substance: MORPHINE SULFATE
     Dosage: 1 TABLET, Q8H (STRENGTH 100 MG) WITH 60 MG TABLETS
     Route: 048
     Dates: start: 20020125, end: 20020224
  8. MORPHINE SULFATE [Suspect]
     Active Substance: MORPHINE SULFATE
     Dosage: 1 TABLET, Q8H (STRENGTH 60 MG) TAKE WITH 60 MG
     Route: 048
     Dates: start: 20020125, end: 20020224
  9. MORPHINE SULFATE [Suspect]
     Active Substance: MORPHINE SULFATE
     Dosage: 1 TABLET, Q8H (STRENGTH 30 MG) (TAKE WITH OTHER MS CONTIN TABLETS)
     Route: 048
     Dates: start: 20020129, end: 20020228
  10. MORPHINE SULFATE [Suspect]
     Active Substance: MORPHINE SULFATE
     Dosage: 1 TABLET, Q8H (STRENGTH 60 MG , TAKE ALONG WITH 100 MG TABLETS)
     Route: 048
     Dates: start: 20020225, end: 20020327
  11. MORPHINE SULFATE [Suspect]
     Active Substance: MORPHINE SULFATE
     Dosage: 1 TABLET, Q8H (STRENGTH 100 MG , TAKE ALONG WITH 60 MG TABLETS)
     Route: 048
     Dates: start: 20020225, end: 20020327
  12. MORPHINE SULFATE [Suspect]
     Active Substance: MORPHINE SULFATE
     Dosage: 1 TABLET, Q8H (STRENGTH 60 MG , TAKE ALONG WITH 100 MG TABLETS AS DIRECTED)
     Route: 048
     Dates: start: 20020325, end: 20020424
  13. MORPHINE SULFATE [Suspect]
     Active Substance: MORPHINE SULFATE
     Dosage: 1 TABLET, Q8H (STRENGTH 100 MG)
     Route: 048
     Dates: start: 20020225, end: 20020327
  14. MORPHINE SULFATE [Suspect]
     Active Substance: MORPHINE SULFATE
     Dosage: 2 TABLET, BID (AT 6 AM AND 10 PM) (STRENGTH 100 MG)
     Route: 048
     Dates: start: 20020419, end: 20020519
  15. MORPHINE SULFATE [Suspect]
     Active Substance: MORPHINE SULFATE
     Dosage: 3 TABLET, DAILY (EVERY EVENING AT 2 PM) (STRENGTH 60 MG)
     Route: 048
     Dates: start: 20020419, end: 20020519
  16. MORPHINE SULFATE [Suspect]
     Active Substance: MORPHINE SULFATE
     Dosage: 2 TABLET, BID (AT 6 AM AND 10 PM) (STRENGTH 100 MG)
     Route: 048
     Dates: start: 20020422, end: 20020522
  17. MORPHINE SULFATE [Suspect]
     Active Substance: MORPHINE SULFATE
     Dosage: 3 TABLET, DAILY (EVERY DAY AT 2 PM) (STRENGTH 60 MG)
     Route: 048
     Dates: start: 20020422, end: 20020522
  18. MORPHINE SULFATE [Suspect]
     Active Substance: MORPHINE SULFATE
     Dosage: 3 TABLET, DAILY (EVERY DAY AT 2 PM) (STRENGTH 60 MG)
     Route: 048
     Dates: start: 20020520, end: 20020619
  19. MORPHINE SULFATE [Suspect]
     Active Substance: MORPHINE SULFATE
     Dosage: 3 TABLET, DAILY (EVERY DAY AT 2 PM) (STRENGTH 60 MG)
     Route: 048
     Dates: start: 20020617, end: 20020717
  20. MORPHINE SULFATE [Suspect]
     Active Substance: MORPHINE SULFATE
     Dosage: 2 TABLET, BID (AT 6 AM AND 11 PM) (STRENGTH 100 MG)
     Route: 048
     Dates: start: 20020715, end: 20020814
  21. MORPHINE SULFATE [Suspect]
     Active Substance: MORPHINE SULFATE
     Dosage: 2 TABLET, Q8H (200 MG) (STRENGTH 100 MG)
     Route: 048
  22. MORPHINE SULFATE [Suspect]
     Active Substance: MORPHINE SULFATE
     Dosage: 1 TABLET, TID (EVERY 8-12 HRS) (STRENGTH 30 MG), 1 TABLET 3 TIMES A DAY
     Route: 048
  23. MORPHINE SULFATE [Suspect]
     Active Substance: MORPHINE SULFATE
     Dosage: 3 TABLET, BID (STRENGTH 60 MG), 3 TABLET EVERY 12 HOURS
     Route: 048
  24. MORPHINE SULFATE [Suspect]
     Active Substance: MORPHINE SULFATE
     Dosage: 3 TABLET, Q12H (STRENGTH 60 MG)
     Route: 048
  25. MORPHINE SULFATE [Suspect]
     Active Substance: MORPHINE SULFATE
     Dosage: UNK (STRENGTH 180 MG)
     Route: 048
  26. MORPHINE SULFATE [Suspect]
     Active Substance: MORPHINE SULFATE
     Dosage: (STRENGTH 60 MG TAKE 2 TABLETS EVERY 12 HRS FOR 2 DAYS THEN 3 TABLET EVERY 12 HRS FOR 12 DAYS)
     Route: 048
  27. MORPHINE SULFATE [Suspect]
     Active Substance: MORPHINE SULFATE
     Dosage: (STRENGTH 60 MG TAKE 2 TABLETS EVERY MORNING AND 3 TABLET EVERY EVENING
     Route: 048
  28. MORPHINE SULFATE [Suspect]
     Active Substance: MORPHINE SULFATE
     Dosage: 3 TABLET, DAILY (EVERY DAY AT 2 PM) (STRENGTH 60 MG)
     Route: 048
     Dates: start: 20020812
  29. MORPHINE SULFATE [Suspect]
     Active Substance: MORPHINE SULFATE
     Dosage: 2 TABLET, BID (AT 6 AM AND 11 PM) (STRENGTH 100 MG)
     Route: 048
     Dates: start: 20020812, end: 20020815
  30. DILAUDID [Suspect]
     Active Substance: HYDROMORPHONE HYDROCHLORIDE
     Indication: Product used for unknown indication
     Dosage: UNK
     Route: 048
  31. MS CONTIN [Suspect]
     Active Substance: MORPHINE SULFATE
     Indication: Product used for unknown indication
     Dosage: UNK
     Route: 048
  32. MS CONTIN [Suspect]
     Active Substance: MORPHINE SULFATE
     Dosage: 30 MILLIGRAM, TID (EXTRA FOR 10 DAYS)
     Route: 048
  33. MS CONTIN [Suspect]
     Active Substance: MORPHINE SULFATE
     Dosage: (120 MG Q AM AND 180 MG Q PM)
     Route: 048
  34. BUPRENORPHINE [Suspect]
     Active Substance: BUPRENORPHINE
     Indication: Product used for unknown indication
     Dosage: UNK
     Route: 062
  35. OXYCODONE HYDROCHLORIDE [Suspect]
     Active Substance: OXYCODONE HYDROCHLORIDE
     Indication: Product used for unknown indication
     Dosage: UNK
     Route: 048
  36. HYDROMORPHONE [Suspect]
     Active Substance: HYDROMORPHONE
     Indication: Product used for unknown indication
     Dosage: UNK
     Route: 048
  37. OXYCODONE HYDROCHLORIDE [Suspect]
     Active Substance: OXYCODONE HYDROCHLORIDE
     Indication: Product used for unknown indication
     Dosage: UNK
     Route: 065
  38. RYZOLT [Suspect]
     Active Substance: TRAMADOL HYDROCHLORIDE
     Indication: Product used for unknown indication
     Dosage: UNK
     Route: 048
  39. OXYCODONE AND ACETAMINOPHEN [Suspect]
     Active Substance: ACETAMINOPHEN\OXYCODONE HYDROCHLORIDE
     Indication: Pain
     Dosage: UNK
     Route: 048
  40. OXYCODONE AND ACETAMINOPHEN [Suspect]
     Active Substance: ACETAMINOPHEN\OXYCODONE HYDROCHLORIDE
     Indication: Musculoskeletal chest pain
     Dosage: 1 TABLET, Q4H PRN
     Route: 048
     Dates: start: 20020122, end: 20020221
  41. OXYCODONE AND ACETAMINOPHEN [Suspect]
     Active Substance: ACETAMINOPHEN\OXYCODONE HYDROCHLORIDE
     Dosage: 2 TABLET, Q6H PRN
     Route: 048
     Dates: start: 20020325, end: 20020424
  42. OXYCODONE AND ACETAMINOPHEN [Suspect]
     Active Substance: ACETAMINOPHEN\OXYCODONE HYDROCHLORIDE
     Dosage: Q4H PRN (TAKE 1-2 TABLETS)
     Route: 048
     Dates: start: 20020813
  43. OXYCODONE AND ACETAMINOPHEN [Suspect]
     Active Substance: ACETAMINOPHEN\OXYCODONE HYDROCHLORIDE
     Dosage: 5/325 MILLIGRAM
     Route: 048
     Dates: end: 19980626
  44. BUTRANS [Suspect]
     Active Substance: BUPRENORPHINE
     Indication: Product used for unknown indication
     Dosage: UNK
     Route: 062
  45. ACETAMINOPHEN\OXYCODONE HYDROCHLORIDE\OXYCODONE TEREPHTHALATE [Suspect]
     Active Substance: ACETAMINOPHEN\OXYCODONE HYDROCHLORIDE\OXYCODONE TEREPHTHALATE
     Indication: Product used for unknown indication
     Dosage: UNK
     Route: 065

REACTIONS (28)
  - Brain injury [Fatal]
  - Drug use disorder [Fatal]
  - Accidental overdose [Fatal]
  - Drug dependence [Unknown]
  - Cardiac arrest [Unknown]
  - Acidosis [Unknown]
  - Unresponsive to stimuli [Unknown]
  - Renal failure [Unknown]
  - Toxicity to various agents [Unknown]
  - Respiratory arrest [Unknown]
  - Cardio-respiratory arrest [Unknown]
  - Apnoea [Recovering/Resolving]
  - Intervertebral disc disorder [Unknown]
  - Back pain [Unknown]
  - Vomiting [Unknown]
  - Fall [Unknown]
  - Dizziness [Unknown]
  - Somnolence [Unknown]
  - Depression [Unknown]
  - Malaise [Unknown]
  - Influenza [Unknown]
  - Nausea [Unknown]
  - Diarrhoea [Unknown]
  - Sleep disorder [Unknown]
  - Loss of personal independence in daily activities [Unknown]
  - Spinal osteoarthritis [Recovering/Resolving]
  - Decreased appetite [Unknown]
  - Incorrect dose administered [Unknown]

NARRATIVE: CASE EVENT DATE: 20020815
